FAERS Safety Report 4338028-2 (Version None)
Quarter: 2004Q2

REPORT INFORMATION
  Report Type: 
  Country: None (occurrence: None)
  Receive Date: 20040407
  Receipt Date: 20040324
  Transmission Date: 20050107
  Serious: Yes (Hospitalization)
  Sender: FDA-Public Use
  Company Number: 2004206027FR

PATIENT
  Age: 82 Year
  Sex: Female

DRUGS (9)
  1. SOLU-MEDROL [Suspect]
     Indication: RESPIRATORY DISORDER
     Dosage: 60 MG, BID, IV
     Route: 042
     Dates: start: 20040121, end: 20040127
  2. EQUANIL [Concomitant]
  3. NITRIDERM TTS [Concomitant]
  4. AUGMENTIN '125' [Concomitant]
  5. BRICANYL [Concomitant]
  6. ATROVENT [Concomitant]
  7. LEXOMIL [Concomitant]
  8. INSULATARD NPH HUMAN [Concomitant]
  9. LOVENOX [Concomitant]

REACTIONS (3)
  - CONFUSIONAL STATE [None]
  - GASTROINTESTINAL HAEMORRHAGE [None]
  - RESTLESSNESS [None]
